FAERS Safety Report 20379352 (Version 1)
Quarter: 2022Q1

REPORT INFORMATION
  Report Type: Spontaneous
  Country: US (occurrence: None)
  Receive Date: 20220126
  Receipt Date: 20220126
  Transmission Date: 20220423
  Serious: Yes (Disabling)
  Sender: FDA-Public Use
  Company Number: None

PATIENT
  Age: 64 Year
  Sex: Male
  Weight: 72 kg

DRUGS (19)
  1. TERBINAFINE HYDROCHLORIDE [Suspect]
     Active Substance: TERBINAFINE HYDROCHLORIDE
     Indication: Onychomycosis
     Dosage: FREQUENCY : DAILY;  1 TABLET?
     Route: 048
     Dates: start: 20211103, end: 20220121
  2. CPAP MACHINE [Concomitant]
  3. XHANCE [Concomitant]
  4. SPRAY   ENALAPRIL MALEATE   ATORVASTATIN   TAMSULOSIN HCL   DULOXETINE [Concomitant]
  5. SPRAY [Concomitant]
  6. ENALAPRIL MALEATE [Concomitant]
  7. ATORVASTATIN [Concomitant]
  8. TAMSULOSIN HCL [Concomitant]
  9. DULOXETINE HCL [Concomitant]
  10. SERTRALINE HCL [Concomitant]
  11. ZOLPIDEM TARTRATE [Concomitant]
  12. DICLOFENAC SODIUM [Concomitant]
  13. OXYCODONE HCL [Concomitant]
  14. FISH OIL [Concomitant]
  15. COQ [Concomitant]
  16. VITAMIN D3 [Concomitant]
  17. TUMERIC FORTE [Concomitant]
  18. ASPIRIN [Concomitant]
  19. IBUPROFEN [Concomitant]
     Active Substance: IBUPROFEN

REACTIONS (1)
  - Ageusia [None]

NARRATIVE: CASE EVENT DATE: 20211212
